FAERS Safety Report 10173809 (Version 1)
Quarter: 2014Q2

REPORT INFORMATION
  Report Type: Spontaneous
  Country: US (occurrence: None)
  Receive Date: 20140514
  Receipt Date: 20140514
  Transmission Date: 20141212
  Serious: No
  Sender: FDA-Public Use
  Company Number: None

PATIENT
  Age: 15 Year
  Sex: Male
  Weight: 72.58 kg

DRUGS (1)
  1. CLARAVIS [Suspect]
     Indication: ACNE
     Route: 048
     Dates: start: 20140430, end: 20140510

REACTIONS (5)
  - Hypersomnia [None]
  - Decreased interest [None]
  - Irritability [None]
  - Arthralgia [None]
  - Tearfulness [None]
